FAERS Safety Report 7308019-8 (Version None)
Quarter: 2011Q1

REPORT INFORMATION
  Report Type: 
  Country: None (occurrence: None)
  Receive Date: 20110223
  Receipt Date: 20100601
  Transmission Date: 20110831
  Serious: Yes (Other)
  Sender: FDA-Public Use
  Company Number: US-BAYER-200937701NA

PATIENT
  Sex: Female
  Weight: 161 kg

DRUGS (5)
  1. YASMIN [Suspect]
     Indication: ORAL CONTRACEPTION
     Dosage: UNK UNK, QD
     Dates: start: 20050801, end: 20051001
  2. OXAPROZIN [Concomitant]
     Dosage: 600 MG, UNK
     Route: 048
     Dates: start: 20050916
  3. PHENTERMINE [Concomitant]
     Dosage: 37.5 MG, UNK
     Dates: start: 20051101
  4. YASMIN [Suspect]
     Indication: DYSMENORRHOEA
  5. ADENOCARD [Concomitant]

REACTIONS (3)
  - DEEP VEIN THROMBOSIS [None]
  - PAIN IN EXTREMITY [None]
  - OEDEMA PERIPHERAL [None]
